FAERS Safety Report 8796104 (Version 1)
Quarter: 2012Q4

REPORT INFORMATION
  Report Type: 
  Country: ES (occurrence: ES)
  Receive Date: 20120920
  Receipt Date: 20120920
  Transmission Date: 20130627
  Serious: Yes (Hospitalization)
  Sender: FDA-Public Use
  Company Number: ES-BRISTOL-MYERS SQUIBB COMPANY-16944217

PATIENT
  Age: 61 Year
  Sex: Female

DRUGS (6)
  1. ORENCIA FOR INJ 250 MG/VIAL [Suspect]
     Indication: RHEUMATOID ARTHRITIS
     Route: 042
     Dates: start: 200805, end: 201201
  2. CHLOROQUINE PHOSPHATE [Suspect]
     Indication: RHEUMATOID ARTHRITIS
     Route: 048
     Dates: start: 200705, end: 201201
  3. PARACETAMOL [Concomitant]
  4. PREDNISONE [Concomitant]
     Route: 048
  5. METHOTREXATE [Concomitant]
  6. OMEPRAZOLE [Concomitant]
     Route: 048

REACTIONS (1)
  - Hepatitis [Recovered/Resolved]
